FAERS Safety Report 8024078-1 (Version None)
Quarter: 2012Q1

REPORT INFORMATION
  Report Type: 
  Country: None (occurrence: None)
  Receive Date: 20120105
  Receipt Date: 20111228
  Transmission Date: 20120608
  Serious: Yes (Congenital Anomaly)
  Sender: FDA-Public Use
  Company Number: US-JNJFOC-20111107543

PATIENT
  Sex: Male

DRUGS (4)
  1. LEXAPRO [Suspect]
     Indication: FOETAL EXPOSURE DURING PREGNANCY
     Route: 064
  2. ZOFRAN [Suspect]
     Indication: FOETAL EXPOSURE DURING PREGNANCY
     Route: 064
  3. TOPAMAX [Suspect]
     Route: 064
     Dates: start: 20030827, end: 20040722
  4. TOPAMAX [Suspect]
     Indication: MIGRAINE
     Route: 064

REACTIONS (2)
  - HYPOSPADIAS [None]
  - GROWTH RETARDATION [None]
